FAERS Safety Report 6337645-8 (Version None)
Quarter: 2009Q3

REPORT INFORMATION
  Report Type: 
  Country: None (occurrence: None)
  Receive Date: 20090902
  Receipt Date: 20090820
  Transmission Date: 20100115
  Serious: No
  Sender: FDA-Public Use
  Company Number: HR-ASTRAZENECA-2009SE10427

PATIENT
  Age: 11724 Day
  Sex: Female
  Weight: 55 kg

DRUGS (2)
  1. SEROQUEL [Suspect]
     Indication: SCHIZOPHRENIA
     Route: 048
     Dates: start: 20060101, end: 20090825
  2. MODITEN [Concomitant]
     Indication: SCHIZOPHRENIA
     Route: 048
     Dates: start: 20090811

REACTIONS (1)
  - LEUKOPENIA [None]
